FAERS Safety Report 24979091 (Version 1)
Quarter: 2025Q1

REPORT INFORMATION
  Report Type: Spontaneous
  Country: PT (occurrence: PT)
  Receive Date: 20250218
  Receipt Date: 20250218
  Transmission Date: 20250409
  Serious: Yes (Other)
  Sender: ORGANON
  Company Number: PT-ORGANON-O2502PRT000925

PATIENT
  Age: 10 Month

DRUGS (1)
  1. CELESTONE [Suspect]
     Active Substance: BETAMETHASONE
     Route: 048
     Dates: start: 20250206

REACTIONS (3)
  - Haematochezia [Unknown]
  - Mucous stools [Unknown]
  - Gastroenteritis [Unknown]

NARRATIVE: CASE EVENT DATE: 20250201
